FAERS Safety Report 21927867 (Version 1)
Quarter: 2023Q1

REPORT INFORMATION
  Report Type: Spontaneous
  Country: US (occurrence: None)
  Receive Date: 20230130
  Receipt Date: 20230130
  Transmission Date: 20230418
  Serious: No
  Sender: FDA-Public Use
  Company Number: None

PATIENT
  Sex: 0

DRUGS (1)
  1. TYLENOL [Suspect]
     Active Substance: ACETAMINOPHEN

REACTIONS (5)
  - Gastric ulcer [None]
  - Abdominal pain upper [None]
  - Extra dose administered [None]
  - Gastric haemorrhage [None]
  - Treatment noncompliance [None]
